FAERS Safety Report 10633034 (Version 2)
Quarter: 2014Q4

REPORT INFORMATION
  Report Type: Spontaneous
  Country: US (occurrence: US)
  Receive Date: 20141205
  Receipt Date: 20141205
  Transmission Date: 20150529
  Serious: No
  Sender: FDA-Public Use
  Company Number: US-BRISTOL-MYERS SQUIBB COMPANY-21345509

PATIENT
  Age: 79 Year
  Sex: Female
  Weight: 58.96 kg

DRUGS (5)
  1. METOPROLOL [Concomitant]
     Active Substance: METOPROLOL
     Indication: HYPERTENSION
  2. ASPIRIN. [Concomitant]
     Active Substance: ASPIRIN
     Indication: HERPES ZOSTER
  3. AMIODARONE [Concomitant]
     Active Substance: AMIODARONE
  4. ELIQUIS [Suspect]
     Active Substance: APIXABAN
     Indication: CEREBROVASCULAR ACCIDENT PROPHYLAXIS
     Dates: start: 20140822
  5. DIGOXIN. [Concomitant]
     Active Substance: DIGOXIN

REACTIONS (5)
  - Contusion [Recovering/Resolving]
  - Dyspnoea [Unknown]
  - Dizziness [Unknown]
  - Insomnia [Unknown]
  - Fall [Unknown]

NARRATIVE: CASE EVENT DATE: 201408
